FAERS Safety Report 7177049-1 (Version None)
Quarter: 2010Q4

REPORT INFORMATION
  Report Type: 
  Country: None (occurrence: None)
  Receive Date: 20101207
  Receipt Date: 20101122
  Transmission Date: 20110411
  Serious: Yes (Hospitalization)
  Sender: FDA-Public Use
  Company Number: 022865

PATIENT
  Sex: Male

DRUGS (2)
  1. CIMZIA [Suspect]
     Indication: CROHN'S DISEASE
     Dosage: (SUBCUTANEOUS) ; (200 MG 1X/2 WEEKS, INJECTIONS ON HOLD SUBCUTANEOUS)
     Route: 058
     Dates: start: 20090102, end: 20100101
  2. CIMZIA [Suspect]
     Indication: CROHN'S DISEASE
     Dosage: (SUBCUTANEOUS) ; (200 MG 1X/2 WEEKS, INJECTIONS ON HOLD SUBCUTANEOUS)
     Route: 058
     Dates: start: 20101025

REACTIONS (1)
  - HOSPITALISATION [None]
